FAERS Safety Report 9964402 (Version 3)
Quarter: 2014Q3

REPORT INFORMATION
  Report Type: Spontaneous
  Country: US (occurrence: US)
  Receive Date: 20140305
  Receipt Date: 20140812
  Transmission Date: 20150326
  Serious: Yes (Hospitalization, Other)
  Sender: FDA-Public Use
  Company Number: PHHY2014US023870

PATIENT
  Age: 35 Year
  Sex: Male

DRUGS (3)
  1. VERAPAMIL [Suspect]
     Active Substance: VERAPAMIL HYDROCHLORIDE
     Dosage: 57 DF, ONCE/SINGLE
     Route: 048
  2. METOPROLOL [Suspect]
     Active Substance: METOPROLOL
     Dosage: 47 DF, ONCE/SINGLE
     Route: 048
  3. AMLODIPINE [Suspect]
     Active Substance: AMLODIPINE BESYLATE
     Dosage: 30 DF, ONCE/SINGLE
     Route: 048

REACTIONS (13)
  - Hyperkalaemia [Unknown]
  - Suicide attempt [Unknown]
  - Unresponsive to stimuli [Recovered/Resolved]
  - Hypoglycaemia [Unknown]
  - Lactic acidosis [Unknown]
  - Pulseless electrical activity [Recovering/Resolving]
  - Sinus bradycardia [Unknown]
  - Blood pressure immeasurable [Recovered/Resolved]
  - Intentional overdose [Unknown]
  - Hypotension [Unknown]
  - Renal failure acute [Unknown]
  - Cardiac arrest [Unknown]
  - Cardiogenic shock [Recovering/Resolving]
